FAERS Safety Report 8607823-3 (Version None)
Quarter: 2012Q3

REPORT INFORMATION
  Report Type: 
  Country: None (occurrence: None)
  Receive Date: 20120821
  Receipt Date: 20120810
  Transmission Date: 20120928
  Serious: Yes (Other)
  Sender: FDA-Public Use
  Company Number: CA-JNJFOC-20120806086

PATIENT
  Age: 57 Year
  Sex: Female

DRUGS (4)
  1. ATIVAN [Concomitant]
     Indication: ANXIETY
     Dosage: 18 YEARS
     Route: 065
  2. NICODERM [Suspect]
     Indication: SMOKING CESSATION THERAPY
     Route: 062
     Dates: start: 20120806
  3. ZANTAC [Concomitant]
     Indication: GASTROOESOPHAGEAL REFLUX DISEASE
     Route: 065
  4. ESTRADERM [Concomitant]
     Indication: HORMONE REPLACEMENT THERAPY
     Dosage: 20 YEARS
     Route: 065

REACTIONS (10)
  - DYSPNOEA [None]
  - CHEST PAIN [None]
  - DIZZINESS [None]
  - CHEST DISCOMFORT [None]
  - FATIGUE [None]
  - NERVOUSNESS [None]
  - ASTHENIA [None]
  - VISION BLURRED [None]
  - MALAISE [None]
  - DRUG INEFFECTIVE [None]
